FAERS Safety Report 4654529-1 (Version None)
Quarter: 2005Q2

REPORT INFORMATION
  Report Type: 
  Country: None (occurrence: None)
  Receive Date: 20050504
  Receipt Date: 20050504
  Transmission Date: 20051028
  Serious: Yes (Disabling)
  Sender: FDA-Public Use
  Company Number: None

PATIENT
  Sex: Male
  Weight: 27.2158 kg

DRUGS (3)
  1. KWELL [Suspect]
     Indication: LICE INFESTATION
     Dosage: NO DOSAGE, JUST TREAT HEAD AND RETREAT IN 7-10 DAYS
     Dates: start: 19970101, end: 20040101
  2. NIX [Suspect]
  3. RID MOUSSE [Suspect]

REACTIONS (1)
  - SELF-MEDICATION [None]
